FAERS Safety Report 17647555 (Version 3)
Quarter: 2020Q3

REPORT INFORMATION
  Report Type: Report from Study
  Country: US (occurrence: US)
  Receive Date: 20200408
  Receipt Date: 20200812
  Transmission Date: 20201102
  Serious: Yes (Hospitalization, Other)
  Sender: FDA-Public Use
  Company Number: US-SHIRE-US202012739

PATIENT
  Age: 79 Year
  Sex: Female

DRUGS (8)
  1. GATTEX [Suspect]
     Active Substance: TEDUGLUTIDE\WATER
     Dosage: 1.3 MILLIGRAM, 1X/DAY:QD
     Route: 058
     Dates: start: 20200702
  2. GATTEX [Suspect]
     Active Substance: TEDUGLUTIDE\WATER
     Dosage: 1.3 MILLIGRAM, 1X/DAY:QD
     Route: 058
     Dates: start: 20200702
  3. GATTEX [Suspect]
     Active Substance: TEDUGLUTIDE\WATER
     Dosage: 1.3 MILLIGRAM, 1X/DAY:QD
     Route: 058
     Dates: start: 20200702
  4. GATTEX [Suspect]
     Active Substance: TEDUGLUTIDE\WATER
     Indication: SHORT-BOWEL SYNDROME
     Dosage: 0.2550 UNK UNITS
     Route: 065
     Dates: start: 20190815
  5. GATTEX [Suspect]
     Active Substance: TEDUGLUTIDE\WATER
     Indication: SHORT-BOWEL SYNDROME
     Dosage: 0.2550 UNK UNITS
     Route: 065
     Dates: start: 20190815
  6. GATTEX [Suspect]
     Active Substance: TEDUGLUTIDE\WATER
     Indication: SHORT-BOWEL SYNDROME
     Dosage: 0.2550 UNK UNITS
     Route: 065
     Dates: start: 20190815
  7. GATTEX [Suspect]
     Active Substance: TEDUGLUTIDE\WATER
     Indication: SHORT-BOWEL SYNDROME
     Dosage: 0.2550 UNK UNITS
     Route: 065
     Dates: start: 20190815
  8. GATTEX [Suspect]
     Active Substance: TEDUGLUTIDE\WATER
     Dosage: 1.3 MILLIGRAM, 1X/DAY:QD
     Route: 058
     Dates: start: 20200702

REACTIONS (5)
  - Colitis [Recovering/Resolving]
  - Dehydration [Unknown]
  - Hospitalisation [Recovering/Resolving]
  - Nasopharyngitis [Unknown]
  - Inappropriate schedule of product administration [Unknown]

NARRATIVE: CASE EVENT DATE: 20200706
